FAERS Safety Report 15931594 (Version 5)
Quarter: 2019Q2

REPORT INFORMATION
  Report Type: Spontaneous
  Country: US (occurrence: US)
  Receive Date: 20190207
  Receipt Date: 20190619
  Transmission Date: 20190711
  Serious: Yes (Hospitalization, Other)
  Sender: FDA-Public Use
  Company Number: US-AMGEN-USASP2019016735

PATIENT
  Age: 85 Year
  Sex: Female
  Weight: 65.31 kg

DRUGS (9)
  1. CALCITONIN SALMON. [Concomitant]
     Active Substance: CALCITONIN SALMON
     Dosage: UNK
  2. 4-AMINOPYRIDINE [Concomitant]
     Active Substance: DALFAMPRIDINE
     Dosage: 5 MILLIGRAM, QID
  3. ATENOLOL. [Concomitant]
     Active Substance: ATENOLOL
     Dosage: UNK
  4. AMITRIPTYLINE [Concomitant]
     Active Substance: AMITRIPTYLINE
     Dosage: 25 MG, UNK
  5. PROLIA [Suspect]
     Active Substance: DENOSUMAB
     Indication: OSTEOPOROSIS POSTMENOPAUSAL
     Dosage: 60 MILLIGRAM, Q6MO
     Route: 058
     Dates: start: 201806, end: 201806
  6. 4-AMINOPYRIDINE [Concomitant]
     Active Substance: DALFAMPRIDINE
     Dosage: 10 MILLIGRAM
  7. CENTRUM SILVER [Concomitant]
     Active Substance: MINERALS\VITAMINS
     Dosage: UNK
  8. PLAVIX [Concomitant]
     Active Substance: CLOPIDOGREL BISULFATE
     Dosage: 75 MG, UNK
  9. VITAMIN D [Concomitant]
     Active Substance: VITAMIN D NOS
     Dosage: UNK

REACTIONS (30)
  - Pain [Unknown]
  - Generalised oedema [Not Recovered/Not Resolved]
  - Headache [Recovered/Resolved]
  - Swelling face [Not Recovered/Not Resolved]
  - Transient ischaemic attack [Unknown]
  - Brain oedema [Not Recovered/Not Resolved]
  - Pharyngeal swelling [Not Recovered/Not Resolved]
  - Lacrimation increased [Unknown]
  - Joint dislocation [Unknown]
  - Arthralgia [Unknown]
  - Fall [Unknown]
  - Kidney infection [Unknown]
  - Bone swelling [Unknown]
  - Skin mass [Unknown]
  - Blood cholesterol abnormal [Unknown]
  - Blindness [Recovering/Resolving]
  - Cerebrovascular accident [Unknown]
  - Intraocular pressure test abnormal [Unknown]
  - Dyspnoea [Not Recovered/Not Resolved]
  - Peripheral swelling [Not Recovered/Not Resolved]
  - Blood pressure fluctuation [Recovered/Resolved]
  - Hypertension [Recovered/Resolved]
  - Syncope [Unknown]
  - Pulse abnormal [Unknown]
  - Mass [Recovered/Resolved]
  - Papule [Not Recovered/Not Resolved]
  - Constipation [Unknown]
  - Blindness unilateral [Unknown]
  - Night sweats [Not Recovered/Not Resolved]
  - Feeling abnormal [Unknown]

NARRATIVE: CASE EVENT DATE: 2018
